FAERS Safety Report 15286604 (Version 2)
Quarter: 2018Q3

REPORT INFORMATION
  Report Type: Report from Study
  Country: US (occurrence: US)
  Receive Date: 20180816
  Receipt Date: 20180903
  Transmission Date: 20181010
  Serious: Yes (Hospitalization, Other)
  Sender: FDA-Public Use
  Company Number: US-TAKEDA-2018TUS024790

PATIENT
  Sex: Female

DRUGS (2)
  1. PONATINIB [Suspect]
     Active Substance: PONATINIB
     Indication: CHRONIC MYELOID LEUKAEMIA (IN REMISSION)
     Dosage: 30 MG, QD
     Route: 048
     Dates: start: 20180728, end: 20180811
  2. PONATINIB [Suspect]
     Active Substance: PONATINIB
     Dosage: 15 MG, QD
     Route: 048

REACTIONS (7)
  - Inflammation [Unknown]
  - Nausea [Unknown]
  - Abdominal pain [Unknown]
  - Back pain [Unknown]
  - Decreased appetite [Unknown]
  - Fatigue [Unknown]
  - Pancreatitis [Unknown]
